FAERS Safety Report 5078870-6 (Version None)
Quarter: 2006Q3

REPORT INFORMATION
  Report Type: 
  Country: None (occurrence: None)
  Receive Date: 20060814
  Receipt Date: 20060803
  Transmission Date: 20061208
  Serious: Yes (Hospitalization)
  Sender: FDA-Public Use
  Company Number: PHHO2006JP12792

PATIENT
  Age: 38 Year
  Sex: Male
  Weight: 55 kg

DRUGS (8)
  1. SIMULECT [Suspect]
     Indication: RENAL TRANSPLANT
     Dosage: 20 MG, DAY 4
     Route: 048
     Dates: start: 20030211, end: 20030211
  2. SIMULECT [Suspect]
     Dosage: 20 MG, DAY 0
     Route: 042
     Dates: start: 20030207, end: 20030207
  3. PREDONINE [Suspect]
     Indication: RENAL TRANSPLANT
     Dosage: 60 MG/DAILY
     Route: 048
     Dates: start: 20030205
  4. PREDONINE [Suspect]
     Dosage: 10 MG/DAILY
     Route: 048
     Dates: start: 20030806
  5. CELLCEPT [Suspect]
     Indication: RENAL TRANSPLANT
     Dosage: 2000MG/DAILY
     Route: 048
     Dates: start: 20030205, end: 20030211
  6. CELLCEPT [Suspect]
     Dosage: 1000MG/DAILY
     Route: 048
     Dates: start: 20030212
  7. TACROLIMUS [Suspect]
     Indication: RENAL TRANSPLANT
     Dosage: 22MG/DAILY
     Route: 048
     Dates: start: 20030203, end: 20030314
  8. TACROLIMUS [Suspect]
     Dosage: 9MG/DAILY
     Route: 048
     Dates: start: 20030315

REACTIONS (1)
  - EPIDIDYMITIS [None]
